FAERS Safety Report 8802161 (Version 2)
Quarter: 2015Q3

REPORT INFORMATION
  Report Type: Report from Study
  Country: US (occurrence: US)
  Receive Date: 20120921
  Receipt Date: 20150730
  Transmission Date: 20151125
  Serious: Yes (Death)
  Sender: FDA-Public Use
  Company Number: US-ROCHE-1104647

PATIENT
  Sex: Male

DRUGS (4)
  1. ALOXI [Concomitant]
     Active Substance: PALONOSETRON HYDROCHLORIDE
     Route: 042
  2. GEMZAR [Concomitant]
     Active Substance: GEMCITABINE HYDROCHLORIDE
     Route: 042
  3. DECADRON [Concomitant]
     Active Substance: DEXAMETHASONE
     Route: 042
  4. AVASTIN [Suspect]
     Active Substance: BEVACIZUMAB
     Indication: MALIGNANT RESPIRATORY TRACT NEOPLASM
     Route: 042
     Dates: start: 20050914

REACTIONS (10)
  - Muscular weakness [Unknown]
  - Lung infection [Unknown]
  - Leukocytosis [Unknown]
  - Fall [Unknown]
  - Death [Fatal]
  - Off label use [Unknown]
  - Pyrexia [Unknown]
  - Conjunctival pallor [Unknown]
  - Fatigue [Unknown]
  - Atelectasis [Unknown]
